FAERS Safety Report 19268926 (Version 1)
Quarter: 2021Q2

REPORT INFORMATION
  Report Type: Report from Study
  Country: US (occurrence: US)
  Receive Date: 20210517
  Receipt Date: 20210517
  Transmission Date: 20210717
  Serious: Yes (Other)
  Sender: FDA-Public Use
  Company Number: US-UCBSA-2021022492

PATIENT

DRUGS (2)
  1. LEVETIRACETAM. [Suspect]
     Active Substance: LEVETIRACETAM
     Indication: PREMEDICATION
     Dosage: 20 MG PER KG PER DAY DIVIDED EVERY 12 HOURS
  2. BUSULFAN. [Concomitant]
     Active Substance: BUSULFAN
     Indication: PRODUCT USED FOR UNKNOWN INDICATION

REACTIONS (5)
  - Aspartate aminotransferase increased [Unknown]
  - Venoocclusive disease [Unknown]
  - Stomatitis [Unknown]
  - Product use issue [Unknown]
  - Alanine aminotransferase increased [Unknown]
